FAERS Safety Report 13205877 (Version 1)
Quarter: 2017Q1

REPORT INFORMATION
  Report Type: Spontaneous
  Country: US (occurrence: US)
  Receive Date: 20170208
  Receipt Date: 20170208
  Transmission Date: 20170428
  Serious: Yes (Other)
  Sender: FDA-Public Use
  Company Number: None

PATIENT
  Age: 12 Year
  Sex: Female
  Weight: 52.65 kg

DRUGS (1)
  1. OSELTAMIVIR PHOSPHATE CAPUSULES [Suspect]
     Active Substance: OSELTAMIVIR PHOSPHATE
     Indication: INFLUENZA
     Route: 048
     Dates: start: 20170207, end: 20170207

REACTIONS (4)
  - Somnambulism [None]
  - Hallucination [None]
  - Vomiting [None]
  - Sleep terror [None]

NARRATIVE: CASE EVENT DATE: 20170207
